FAERS Safety Report 10142414 (Version 1)
Quarter: 2014Q2

REPORT INFORMATION
  Report Type: Report from Study
  Country: US (occurrence: US)
  Receive Date: 20140430
  Receipt Date: 20140430
  Transmission Date: 20141212
  Serious: Yes (Other)
  Sender: FDA-Public Use
  Company Number: US-ROCHE-1391814

PATIENT
  Age: 27 Year
  Sex: Female
  Weight: 93.4 kg

DRUGS (4)
  1. MYCOPHENOLATE MOFETIL [Suspect]
     Indication: SYSTEMIC LUPUS ERYTHEMATOSUS
     Route: 048
     Dates: start: 201103
  2. MYCOPHENOLATE MOFETIL [Suspect]
     Indication: LUPUS NEPHRITIS
  3. LISINOPRIL [Suspect]
     Indication: PROTEINURIA
     Dosage: DAILY
     Route: 048
     Dates: start: 20130417, end: 20131220
  4. LISINOPRIL [Suspect]
     Indication: LUPUS NEPHRITIS

REACTIONS (2)
  - Angioedema [Recovered/Resolved]
  - Lip swelling [Recovered/Resolved]
